FAERS Safety Report 21637755 (Version 1)
Quarter: 2022Q4

REPORT INFORMATION
  Report Type: Spontaneous
  Country: CN (occurrence: CN)
  Receive Date: 20221124
  Receipt Date: 20221124
  Transmission Date: 20230112
  Serious: Yes (Hospitalization)
  Sender: FDA-Public Use
  Company Number: CN-SA-SAC20221122000580

PATIENT
  Age: 59 Year
  Sex: Male
  Weight: 59 kg

DRUGS (5)
  1. INSULIN GLARGINE [Suspect]
     Active Substance: INSULIN GLARGINE
     Indication: Diabetic nephropathy
     Dosage: 18 U, QD
     Route: 058
     Dates: start: 20220904, end: 20220904
  2. INSULIN GLARGINE [Suspect]
     Active Substance: INSULIN GLARGINE
     Dosage: 24 U, QD
     Route: 058
     Dates: start: 20220905, end: 20220909
  3. METFORMIN HYDROCHLORIDE [Suspect]
     Active Substance: METFORMIN HYDROCHLORIDE
     Indication: Diabetic nephropathy
     Dosage: 500 MG, QD
     Route: 048
     Dates: start: 20220904, end: 20220909
  4. ACARBOSE [Suspect]
     Active Substance: ACARBOSE
     Indication: Diabetic nephropathy
     Dosage: 0.1 G, QD
     Route: 048
     Dates: start: 20220905, end: 20220905
  5. SITAGLIPTIN PHOSPHATE [Suspect]
     Active Substance: SITAGLIPTIN PHOSPHATE
     Indication: Diabetic nephropathy
     Dosage: 100 MG, QD
     Route: 048
     Dates: start: 20220905, end: 20220905

REACTIONS (3)
  - Palpitations [Recovering/Resolving]
  - Tremor [Recovering/Resolving]
  - Hypoglycaemia [Recovering/Resolving]

NARRATIVE: CASE EVENT DATE: 20220905
